FAERS Safety Report 7617348-X (Version None)
Quarter: 2011Q3

REPORT INFORMATION
  Report Type: 
  Country: None (occurrence: None)
  Receive Date: 20110718
  Receipt Date: 20110707
  Transmission Date: 20111222
  Serious: Yes (Life-Threatening)
  Sender: FDA-Public Use
  Company Number: PL-GENZYME-CERZ-1002141

PATIENT
  Sex: Male
  Weight: 82 kg

DRUGS (1)
  1. CEREZYME [Suspect]
     Indication: GAUCHER'S DISEASE
     Dosage: 2400 U, UNK
     Route: 042
     Dates: start: 20050101, end: 20110613

REACTIONS (1)
  - ANAPHYLACTIC SHOCK [None]
